FAERS Safety Report 5748450-5 (Version None)
Quarter: 2008Q2

REPORT INFORMATION
  Report Type: 
  Country: None (occurrence: None)
  Receive Date: 20080520
  Receipt Date: 20080506
  Transmission Date: 20081010
  Serious: Yes (Other)
  Sender: FDA-Public Use
  Company Number: 2008SP008804

PATIENT
  Age: 80 Year
  Sex: Female

DRUGS (6)
  1. MIRALAX [Suspect]
     Indication: DRUG USE FOR UNKNOWN INDICATION
     Dosage: QD; PO
     Route: 048
     Dates: end: 20080501
  2. EXFORGE (CON.) [Concomitant]
  3. REGLAN (CON.) [Concomitant]
  4. LORAZEPAM (CON.) [Concomitant]
  5. NORTRIPTYLINE (CON.) [Concomitant]
  6. LAVOXYL (CON.) [Concomitant]

REACTIONS (1)
  - BLOOD CREATININE INCREASED [None]
